FAERS Safety Report 16911955 (Version 1)
Quarter: 2019Q4

REPORT INFORMATION
  Report Type: Spontaneous
  Country: US (occurrence: US)
  Receive Date: 20191014
  Receipt Date: 20191014
  Transmission Date: 20200122
  Serious: No
  Sender: FDA-Public Use
  Company Number: US-SA-2019SA278863

PATIENT
  Age: 68 Year
  Sex: Male

DRUGS (1)
  1. NASACORT ALLERGY 24HR [Suspect]
     Active Substance: TRIAMCINOLONE ACETONIDE
     Indication: NASAL CONGESTION
     Dosage: 1SPRAY, QD

REACTIONS (7)
  - Headache [Unknown]
  - Sleep disorder [Unknown]
  - Nervousness [Unknown]
  - Palpitations [Unknown]
  - Abdominal pain upper [Unknown]
  - Discomfort [Unknown]
  - Night sweats [Unknown]
